FAERS Safety Report 9970638 (Version 1)
Quarter: 2014Q1

REPORT INFORMATION
  Report Type: Spontaneous
  Country: US (occurrence: None)
  Receive Date: 20140304
  Receipt Date: 20140304
  Transmission Date: 20141002
  Serious: Yes (Other)
  Sender: FDA-Public Use
  Company Number: 2014P1001556

PATIENT
  Sex: 0

DRUGS (1)
  1. ISOTRETINOIN (ISOTRETINOIN) [Suspect]
     Indication: ACNE CYSTIC

REACTIONS (6)
  - Mood altered [None]
  - Arthralgia [None]
  - Hyperhidrosis [None]
  - Xerosis [None]
  - Rash [None]
  - Hair disorder [None]
